FAERS Safety Report 9739347 (Version 1)
Quarter: 2013Q4

REPORT INFORMATION
  Report Type: Spontaneous
  Country: CN (occurrence: US)
  Receive Date: 20131209
  Receipt Date: 20131209
  Transmission Date: 20140711
  Serious: No
  Sender: FDA-Public Use
  Company Number: CN-BAYER-2013-145730

PATIENT
  Age: 76 Year
  Sex: Male

DRUGS (8)
  1. AVELOX I.V. [Suspect]
     Indication: ANTI-INFECTIVE THERAPY
     Dosage: UNK
     Route: 048
     Dates: start: 20131015
  2. CEFOPERAZONE SODIUM [Suspect]
     Indication: ANTI-INFECTIVE THERAPY
     Dosage: UNK
     Route: 048
     Dates: start: 20070915
  3. AMBROXOL HYDROCHLORIDE [Suspect]
     Indication: CHRONIC OBSTRUCTIVE PULMONARY DISEASE
     Dosage: UNK
     Dates: start: 20070915
  4. AMBROXOL HYDROCHLORIDE [Suspect]
     Indication: ASTHMA
  5. AZTREONAM [Suspect]
     Indication: ANTI-INFECTIVE THERAPY
  6. FLUCONAZOLE [Suspect]
     Indication: ANTI-INFECTIVE THERAPY
  7. SINGULAIR [Concomitant]
  8. PREDNISONE [Concomitant]
     Dosage: 15 MG, UNK
     Dates: start: 20070917, end: 2007

REACTIONS (1)
  - Drug ineffective [None]
